FAERS Safety Report 4423974-1 (Version None)
Quarter: 2004Q3

REPORT INFORMATION
  Report Type: 
  Country: None (occurrence: None)
  Receive Date: 20040809
  Receipt Date: 20040723
  Transmission Date: 20050211
  Serious: Yes (Other)
  Sender: FDA-Public Use
  Company Number: 2004225166CA

PATIENT
  Age: 23 Year
  Sex: Female

DRUGS (3)
  1. DEPO-PROVERA [Suspect]
     Indication: CONTRACEPTION
     Dosage: EVERY 12 3 WEEKS, FIRST INJ, INTRAMUSCULAR
     Route: 030
     Dates: start: 20030801, end: 20030801
  2. SALBUTAMOL (SALBUTAMOL) [Concomitant]
  3. CORTICOSTEROID NOS (CORTICOSTEROID NOS) [Concomitant]

REACTIONS (10)
  - ANGER [None]
  - ASTHMA [None]
  - BREAST DISCHARGE [None]
  - BREAST MASS [None]
  - CRYING [None]
  - DEPRESSION [None]
  - IRRITABILITY [None]
  - LIBIDO DECREASED [None]
  - MIGRAINE [None]
  - WEIGHT INCREASED [None]
